FAERS Safety Report 6736810-5 (Version None)
Quarter: 2010Q2

REPORT INFORMATION
  Report Type: 
  Country: None (occurrence: None)
  Receive Date: 20100521
  Receipt Date: 20100511
  Transmission Date: 20101027
  Serious: Yes (Other)
  Sender: FDA-Public Use
  Company Number: US-ROCHE-703834

PATIENT
  Sex: Female
  Weight: 90.7 kg

DRUGS (1)
  1. CAPECITABINE [Suspect]
     Indication: BREAST CANCER
     Dosage: TAKEN 1500 MG IN AM AND PM
     Route: 048
     Dates: start: 20100129

REACTIONS (5)
  - CHILLS [None]
  - DIARRHOEA [None]
  - ERYTHEMA [None]
  - MACULAR DEGENERATION [None]
  - SKIN EXFOLIATION [None]
